FAERS Safety Report 8111668-0 (Version None)
Quarter: 2012Q1

REPORT INFORMATION
  Report Type: 
  Country: None (occurrence: None)
  Receive Date: 20120203
  Receipt Date: 20120124
  Transmission Date: 20120608
  Serious: Yes (Other)
  Sender: FDA-Public Use
  Company Number: US-MYLANLABS-2012S1001925

PATIENT
  Age: 52 Year
  Sex: Male
  Weight: 68.04 kg

DRUGS (9)
  1. TRIAMCINOLONE ACETONIDE [Concomitant]
     Indication: MIGRAINE
     Dosage: 2 SQTS  A DAY
     Route: 045
     Dates: start: 20090101
  2. FOLIC ACID [Concomitant]
     Indication: VITAMIN SUPPLEMENTATION
     Route: 048
     Dates: start: 20090101
  3. SUMATRIPTAN [Suspect]
     Indication: MIGRAINE
     Route: 030
     Dates: start: 19980101
  4. ACETAMINOPHEN [Concomitant]
  5. PSEUDOEPHEDRINE HCL [Suspect]
     Indication: SINUS HEADACHE
     Route: 048
     Dates: start: 19980101
  6. CALCIUM [Concomitant]
     Indication: VITAMIN SUPPLEMENTATION
     Route: 048
     Dates: start: 20090101
  7. ZONISAMIDE [Suspect]
     Indication: MIGRAINE
     Route: 048
     Dates: start: 20110901, end: 20111201
  8. VITAMIN D [Concomitant]
     Indication: VITAMIN SUPPLEMENTATION
     Route: 048
     Dates: start: 20090101
  9. PHENYTOIN [Concomitant]
     Indication: MENINGITIS
     Route: 048
     Dates: start: 19650101

REACTIONS (3)
  - DRUG INEFFECTIVE [None]
  - MIGRAINE [None]
  - DRUG INTERACTION [None]
